FAERS Safety Report 7703406-8 (Version None)
Quarter: 2011Q3

REPORT INFORMATION
  Report Type: 
  Country: None (occurrence: None)
  Receive Date: 20110823
  Receipt Date: 20110823
  Transmission Date: 20111222
  Serious: Yes (Life-Threatening, Hospitalization)
  Sender: FDA-Public Use
  Company Number: None

PATIENT
  Sex: Female
  Weight: 58.967 kg

DRUGS (1)
  1. PHENYTOIN [Suspect]
     Indication: CONVULSION
     Dosage: 300 MG
     Route: 048
     Dates: start: 20101002, end: 20110125

REACTIONS (3)
  - TOXICITY TO VARIOUS AGENTS [None]
  - ANAPHYLACTIC SHOCK [None]
  - STEVENS-JOHNSON SYNDROME [None]
